FAERS Safety Report 24885285 (Version 1)
Quarter: 2025Q1

REPORT INFORMATION
  Report Type: Spontaneous
  Country: US (occurrence: US)
  Receive Date: 20250124
  Receipt Date: 20250124
  Transmission Date: 20250409
  Serious: No
  Sender: ELITE
  Company Number: US-ELITEPHARMA-2024ELSPO00142

PATIENT
  Age: 51 Year
  Sex: Female

DRUGS (3)
  1. DEXTROAMPHETAMINE SACCHARATE, AMPHETAMINE ASPARTATE, DEXTROAMPHETAMINE [Suspect]
     Active Substance: AMPHETAMINE ASPARTATE\AMPHETAMINE SULFATE\DEXTROAMPHETAMINE SACCHARATE\DEXTROAMPHETAMINE SULFATE
     Indication: Fatigue
     Dosage: 1 TABLET
     Route: 065
  2. DEXTROAMPHETAMINE SACCHARATE, AMPHETAMINE ASPARTATE, DEXTROAMPHETAMINE [Suspect]
     Active Substance: AMPHETAMINE ASPARTATE\AMPHETAMINE SULFATE\DEXTROAMPHETAMINE SACCHARATE\DEXTROAMPHETAMINE SULFATE
     Indication: Fatigue
  3. Tretinoin Spironolactone [Concomitant]
     Indication: Product used for unknown indication
     Route: 061

REACTIONS (10)
  - Malaise [Unknown]
  - Fatigue [Unknown]
  - Headache [Unknown]
  - Brain fog [Unknown]
  - Somnolence [Unknown]
  - Blood pressure increased [Unknown]
  - Extra dose administered [Unknown]
  - Off label use [Unknown]
  - Therapeutic response changed [Unknown]
  - Product substitution issue [Unknown]
